FAERS Safety Report 10248627 (Version 1)
Quarter: 2014Q2

REPORT INFORMATION
  Report Type: Spontaneous
  Country: US (occurrence: None)
  Receive Date: 20140617
  Receipt Date: 20140617
  Transmission Date: 20141212
  Serious: Yes (Hospitalization)
  Sender: FDA-Public Use
  Company Number: None

PATIENT
  Age: 50 Year
  Sex: Male
  Weight: 74.7 kg

DRUGS (2)
  1. RADIATION [Suspect]
     Indication: TONSILLAR DISORDER
     Dosage: 1.5 GY BID DAY 1-12
     Dates: start: 201205, end: 20140523
  2. DOCETAXEL [Suspect]
     Dosage: 30 MG DAYS 1 + 8
     Dates: start: 20140512, end: 20140519

REACTIONS (4)
  - Mucosal inflammation [None]
  - Oral pain [None]
  - Radiation skin injury [None]
  - Blister [None]
